FAERS Safety Report 8475012-1 (Version None)
Quarter: 2012Q2

REPORT INFORMATION
  Report Type: 
  Country: None (occurrence: None)
  Receive Date: 20120628
  Receipt Date: 20120619
  Transmission Date: 20120825
  Serious: Yes (Hospitalization, Other)
  Sender: FDA-Public Use
  Company Number: US-BAYER-2012-032568

PATIENT
  Age: 51 Year
  Sex: Female
  Weight: 63.492 kg

DRUGS (9)
  1. IBUPROFEN (ADVIL) [Concomitant]
     Indication: PAIN
     Dosage: 600 MG, EVERY 6 HOURS AS NEEDED
     Route: 048
  2. YAZ [Suspect]
     Indication: UTERINE HAEMORRHAGE
  3. ASCORBIC ACID [Concomitant]
  4. TRAMADOL HCL [Concomitant]
     Dosage: 50 MG, UNK
     Dates: start: 20100603
  5. YASMIN [Suspect]
     Indication: MENORRHAGIA
     Dosage: UNK
     Dates: start: 20100210, end: 20100530
  6. CEFUROXIME [Concomitant]
     Dosage: UNK
     Dates: start: 20100315
  7. SYNTHROID [Concomitant]
     Indication: THYROID HORMONE REPLACEMENT THERAPY
     Dosage: UNK
     Dates: start: 19910101
  8. CALCIUM [Concomitant]
     Dosage: 1 TABLET 2 TO 3 TIMES WEEKLY
     Dates: start: 20100101
  9. MULTI-VITAMIN [Concomitant]
     Dosage: 1 TABLET 2 TO 3 TIMES WEEKLY
     Dates: start: 20100101

REACTIONS (5)
  - GALLBLADDER NON-FUNCTIONING [None]
  - INJURY [None]
  - PAIN [None]
  - PORTAL VEIN THROMBOSIS [None]
  - MESENTERIC VEIN THROMBOSIS [None]
